FAERS Safety Report 18717925 (Version 1)
Quarter: 2021Q1

REPORT INFORMATION
  Report Type: Spontaneous
  Country: US (occurrence: US)
  Receive Date: 20210108
  Receipt Date: 20210108
  Transmission Date: 20210419
  Serious: Yes (Hospitalization)
  Sender: FDA-Public Use
  Company Number: None

PATIENT
  Age: 68 Year
  Sex: Female
  Weight: 92.6 kg

DRUGS (12)
  1. BAMLANIVIMAB FOR EUA [Suspect]
     Active Substance: BAMLANIVIMAB
     Indication: COVID-19
     Route: 042
     Dates: start: 20201215, end: 20201215
  2. METOPROLOL. [Concomitant]
     Active Substance: METOPROLOL
  3. METFORMIN [Concomitant]
     Active Substance: METFORMIN HYDROCHLORIDE
  4. AMLODIPINE [Concomitant]
     Active Substance: AMLODIPINE BESYLATE
  5. INSULIN NPH/REG [Concomitant]
  6. LOSARTAN. [Concomitant]
     Active Substance: LOSARTAN
  7. ASPIRIN. [Concomitant]
     Active Substance: ASPIRIN
  8. ALLOPURINOL. [Concomitant]
     Active Substance: ALLOPURINOL
  9. CLOPIDOGREL [Concomitant]
     Active Substance: CLOPIDOGREL BISULFATE
  10. ATORVASTATIN [Concomitant]
     Active Substance: ATORVASTATIN
  11. FISH OIL [Concomitant]
     Active Substance: FISH OIL
  12. COENZYME Q [Concomitant]

REACTIONS (5)
  - Swelling face [None]
  - Sensation of foreign body [None]
  - Dyspnoea exertional [None]
  - Urticaria [None]
  - Pharyngeal swelling [None]

NARRATIVE: CASE EVENT DATE: 20201229
